FAERS Safety Report 5381283-0 (Version None)
Quarter: 2007Q3

REPORT INFORMATION
  Report Type: 
  Country: None (occurrence: None)
  Receive Date: 20070702
  Receipt Date: 20070420
  Transmission Date: 20080115
  Serious: Yes (Other)
  Sender: FDA-Public Use
  Company Number: SPV1-2007-01833

PATIENT
  Age: 12 Year
  Sex: Female

DRUGS (9)
  1. PENTASA [Suspect]
     Indication: COLITIS ULCERATIVE
     Dosage: 500 MG 3X'S DAILY, ORAL
     Route: 048
     Dates: start: 20030806, end: 20030924
  2. CEFMETAZOLE                     (CEFMETAZOLE) [Concomitant]
  3. GENTAMICIN SULFATE [Concomitant]
  4. FAMOTIDINE [Concomitant]
  5. MINOCYCLINE HYDROCHLORIDE [Concomitant]
  6. PREDNISOLONE [Concomitant]
  7. PREDNISOLONE SODIUM SUCCINATE INJ [Concomitant]
  8. PENTAZOCINE LACTATE [Concomitant]
  9. TEPRENONE           (TEPRENONE) [Concomitant]

REACTIONS (2)
  - NEPHRITIS INTERSTITIAL [None]
  - PERICARDITIS [None]
